FAERS Safety Report 17784300 (Version 5)
Quarter: 2022Q1

REPORT INFORMATION
  Report Type: Report from Study
  Country: US (occurrence: US)
  Receive Date: 20200514
  Receipt Date: 20220211
  Transmission Date: 20220423
  Serious: Yes (Hospitalization, Other)
  Sender: FDA-Public Use
  Company Number: NVSC2019US087255

PATIENT
  Age: 0 Year
  Sex: Male
  Weight: 6.03 kg

DRUGS (32)
  1. ZOLGENSMA [Suspect]
     Active Substance: ONASEMNOGENE ABEPARVOVEC-XIOI
     Indication: Spinal muscular atrophy
     Dosage: 33 ML, ONCE/SINGLE (1.1 X E14 VG/KG)
     Route: 042
     Dates: start: 20190115
  2. PHYTONADIONE [Concomitant]
     Active Substance: PHYTONADIONE
     Indication: Product used for unknown indication
     Dosage: 2.50 MG, QD
     Route: 065
     Dates: start: 20190307
  3. CEPHULAC [Concomitant]
     Active Substance: LACTULOSE
     Indication: Product used for unknown indication
     Dosage: 10 GM/15ML, 5 ML QD
     Route: 065
  4. RANITIDINE [Concomitant]
     Active Substance: RANITIDINE
     Indication: Product used for unknown indication
     Dosage: 19.50 MG, TID
     Route: 065
  5. PROBIOTICS NOS [Concomitant]
     Active Substance: PROBIOTICS NOS
     Indication: Product used for unknown indication
     Dosage: 0.25 TSP, QD
     Route: 048
  6. VITAMIN D3 [Concomitant]
     Active Substance: CHOLECALCIFEROL
     Indication: Product used for unknown indication
     Dosage: 400 UNIT/0.03 ML, QD
     Route: 065
  7. GLYCERIN [Concomitant]
     Active Substance: GLYCERIN
     Indication: Product used for unknown indication
     Dosage: 1 G, QD
     Route: 054
  8. OMEPRAZOLE [Concomitant]
     Active Substance: OMEPRAZOLE
     Indication: Product used for unknown indication
     Dosage: 1.25 ML, QD
     Route: 048
  9. ORAPRED [Concomitant]
     Active Substance: PREDNISOLONE SODIUM PHOSPHATE
     Indication: Product used for unknown indication
     Dosage: 2.10 ML, QD
     Route: 048
  10. PREDNISOLONE [Concomitant]
     Active Substance: PREDNISOLONE
     Indication: Prophylaxis
     Dosage: 1 MG/KG, QD
     Route: 065
  11. PREDNISOLONE [Concomitant]
     Active Substance: PREDNISOLONE
     Dosage: 5.7 MG
     Route: 065
     Dates: start: 20190114, end: 20190518
  12. PREDNISOLONE [Concomitant]
     Active Substance: PREDNISOLONE
     Dosage: 3.9 MG
     Route: 065
     Dates: start: 20190519, end: 20190715
  13. PREDNISOLONE [Concomitant]
     Active Substance: PREDNISOLONE
     Dosage: 2.7 MG
     Route: 065
     Dates: start: 20190717, end: 20190806
  14. PREDNISOLONE [Concomitant]
     Active Substance: PREDNISOLONE
     Dosage: 2.3 MG
     Route: 065
     Dates: start: 20190807, end: 20190906
  15. PREDNISOLONE [Concomitant]
     Active Substance: PREDNISOLONE
     Dosage: 1.8 MG
     Route: 065
     Dates: start: 20190907, end: 20191028
  16. PREDNISOLONE [Concomitant]
     Active Substance: PREDNISOLONE
     Dosage: 1.5 MG
     Route: 065
     Dates: start: 20191029, end: 20191101
  17. PREDNISOLONE [Concomitant]
     Active Substance: PREDNISOLONE
     Dosage: 1 MG
     Route: 065
     Dates: start: 20191102, end: 20200313
  18. NUSINERSEN [Concomitant]
     Active Substance: NUSINERSEN
     Indication: Spinal muscular atrophy
     Dosage: 12 MG (DOSE 1)
     Route: 065
     Dates: start: 20180821
  19. NUSINERSEN [Concomitant]
     Active Substance: NUSINERSEN
     Dosage: UNK (DOSE 2)
     Route: 065
     Dates: start: 20180904
  20. NUSINERSEN [Concomitant]
     Active Substance: NUSINERSEN
     Dosage: UNK (DOSE 3)
     Route: 065
     Dates: start: 20180918
  21. NUSINERSEN [Concomitant]
     Active Substance: NUSINERSEN
     Dosage: UNK (DOSE 4)
     Route: 065
     Dates: start: 20181019
  22. NUSINERSEN [Concomitant]
     Active Substance: NUSINERSEN
     Dosage: UNK (MAINTENACE)
     Route: 065
     Dates: start: 20190205
  23. NUSINERSEN [Concomitant]
     Active Substance: NUSINERSEN
     Dosage: UNK (MAINTENACE)
     Route: 065
     Dates: start: 20190517
  24. NUSINERSEN [Concomitant]
     Active Substance: NUSINERSEN
     Dosage: UNK (MAINTENACE)
     Route: 065
     Dates: start: 20190917
  25. NUSINERSEN [Concomitant]
     Active Substance: NUSINERSEN
     Dosage: UNK (MAINTENACE)
     Route: 065
     Dates: start: 20200114
  26. VITAMIN K [Concomitant]
     Active Substance: PHYTONADIONE
     Indication: Product used for unknown indication
     Dosage: UNK
     Route: 065
  27. LASIX [Concomitant]
     Active Substance: FUROSEMIDE
     Indication: Product used for unknown indication
     Dosage: UNK
     Route: 065
  28. PANTOPRAZOLE [Concomitant]
     Active Substance: PANTOPRAZOLE
     Indication: Product used for unknown indication
     Dosage: UNK
     Route: 065
  29. URSODIOL [Concomitant]
     Active Substance: URSODIOL
     Indication: Product used for unknown indication
     Dosage: UNK
     Route: 065
  30. KETAMINE [Concomitant]
     Active Substance: KETAMINE
     Indication: Product used for unknown indication
     Dosage: UNK
     Route: 065
  31. ATROPINE [Concomitant]
     Active Substance: ATROPINE
     Indication: Product used for unknown indication
     Dosage: UNK
     Route: 065
  32. FENTANYL [Concomitant]
     Active Substance: FENTANYL
     Indication: Product used for unknown indication
     Dosage: UNK
     Route: 065

REACTIONS (6)
  - Acute hepatic failure [Recovered/Resolved]
  - Liver injury [Unknown]
  - Jaundice [Recovered/Resolved]
  - Aspartate aminotransferase increased [Recovered/Resolved]
  - Laryngospasm [Recovered/Resolved]
  - Bradycardia [Recovered/Resolved]

NARRATIVE: CASE EVENT DATE: 20190120
